FAERS Safety Report 6391403-7 (Version None)
Quarter: 2009Q4

REPORT INFORMATION
  Report Type: 
  Country: None (occurrence: None)
  Receive Date: 20091007
  Receipt Date: 20090928
  Transmission Date: 20100525
  Serious: Yes (Hospitalization)
  Sender: FDA-Public Use
  Company Number: FR-ASTRAZENECA-2009SE16404

PATIENT
  Age: 18750 Day
  Sex: Male

DRUGS (11)
  1. NEXIUM [Suspect]
     Indication: PROPHYLAXIS AGAINST GASTROINTESTINAL ULCER
     Route: 048
     Dates: start: 20090708
  2. CORDARONE [Suspect]
     Indication: ARRHYTHMIA PROPHYLAXIS
     Dosage: 200 MG DAILY, 5 DAYS OUT OF 7
     Route: 048
     Dates: start: 20090724
  3. TAHOR [Suspect]
     Indication: HYPERCHOLESTEROLAEMIA
     Route: 048
     Dates: start: 20090721
  4. KARDEGIC [Suspect]
     Indication: ISCHAEMIC HEART DISEASE PROPHYLAXIS
     Route: 048
     Dates: start: 20090707
  5. HEPARIN CALCIUM [Suspect]
     Indication: MYOCARDIAL INFARCTION
     Route: 042
     Dates: start: 20090707, end: 20090908
  6. ORACILLINE [Concomitant]
     Indication: ANTIBIOTIC PROPHYLAXIS
     Route: 048
  7. ORBENIN CAP [Concomitant]
     Route: 042
     Dates: start: 20090717, end: 20090723
  8. ROCEPHIN [Concomitant]
     Route: 042
     Dates: start: 20090712, end: 20090717
  9. ROCEPHIN [Concomitant]
     Route: 042
     Dates: start: 20090724, end: 20090731
  10. FLAGYL [Concomitant]
     Route: 042
     Dates: start: 20090712, end: 20090717
  11. VANCOMYCIN [Concomitant]
     Route: 042
     Dates: start: 20090725, end: 20090803

REACTIONS (1)
  - EOSINOPHILIA [None]
